FAERS Safety Report 8304032-2 (Version None)
Quarter: 2012Q2

REPORT INFORMATION
  Report Type: 
  Country: None (occurrence: None)
  Receive Date: 20120418
  Receipt Date: 20110902
  Transmission Date: 20120825
  Serious: No
  Sender: FDA-Public Use
  Company Number: AEUSA201100233

PATIENT
  Age: 25 Year
  Sex: Female

DRUGS (5)
  1. ADVAIR DISKUS 100/50 [Concomitant]
  2. PROLASTIN-C [Suspect]
     Indication: ALPHA-1 ANTI-TRYPSIN DEFICIENCY
     Dosage: QW;IV
     Route: 042
     Dates: start: 20101001
  3. ANTIBIOTICS [Concomitant]
  4. MEDROL [Concomitant]
  5. SINGULAIR [Concomitant]

REACTIONS (5)
  - PAIN [None]
  - SINUS DISORDER [None]
  - HEADACHE [None]
  - NAUSEA [None]
  - RETCHING [None]
